FAERS Safety Report 13626591 (Version 1)
Quarter: 2017Q2

REPORT INFORMATION
  Report Type: Spontaneous
  Country: US (occurrence: US)
  Receive Date: 20170531
  Receipt Date: 20170531
  Transmission Date: 20170830
  Serious: Yes (Hospitalization)
  Sender: FDA-Public Use
  Company Number: US-ASTELLAS-1418134

PATIENT
  Age: 82 Year
  Sex: Female
  Weight: 76.27 kg

DRUGS (4)
  1. DECADRON [Concomitant]
     Active Substance: DEXAMETHASONE
     Indication: NAUSEA
     Dosage: 1/2 TAB EVERY AM
     Route: 048
     Dates: start: 20130912, end: 20140405
  2. TARCEVA [Suspect]
     Active Substance: ERLOTINIB HYDROCHLORIDE
     Indication: LUNG NEOPLASM MALIGNANT
     Route: 048
     Dates: start: 20130712, end: 20140416
  3. LORTAB [Concomitant]
     Active Substance: ACETAMINOPHEN\HYDROCODONE BITARTRATE
     Indication: PAIN
     Dosage: 1/2 TAB THRICE A DAY , 10/325 UNIT NOT REPORTED
     Route: 048
     Dates: start: 20130912, end: 20131220
  4. MARINOL [Concomitant]
     Active Substance: DRONABINOL
     Indication: NAUSEA
     Route: 048

REACTIONS (5)
  - Hypophagia [Unknown]
  - Disease progression [Not Recovered/Not Resolved]
  - Decreased appetite [Unknown]
  - Localised infection [Unknown]
  - Diarrhoea [Unknown]

NARRATIVE: CASE EVENT DATE: 20140416
